FAERS Safety Report 20854225 (Version 1)
Quarter: 2022Q2

REPORT INFORMATION
  Report Type: Spontaneous
  Country: US (occurrence: US)
  Receive Date: 20220520
  Receipt Date: 20220520
  Transmission Date: 20220720
  Serious: No
  Sender: FDA-Public Use
  Company Number: US-ELI_LILLY_AND_COMPANY-US202204011205

PATIENT
  Sex: Female

DRUGS (13)
  1. BEBTELOVIMAB [Suspect]
     Active Substance: BEBTELOVIMAB
     Indication: COVID-19
     Dosage: UNK, SINGLE
     Route: 065
     Dates: start: 20220415, end: 20220415
  2. TYLENOL [Concomitant]
     Active Substance: ACETAMINOPHEN
     Indication: Nasal congestion
     Dosage: UNK, UNKNOWN
     Route: 065
  3. TYLENOL [Concomitant]
     Active Substance: ACETAMINOPHEN
     Indication: Cough
  4. TYLENOL [Concomitant]
     Active Substance: ACETAMINOPHEN
     Indication: Laryngitis
  5. TYLENOL [Concomitant]
     Active Substance: ACETAMINOPHEN
     Indication: Headache
  6. MUCINEX [Concomitant]
     Active Substance: GUAIFENESIN
     Indication: Nasal congestion
     Dosage: UNK, UNKNOWN
     Route: 065
  7. MUCINEX [Concomitant]
     Active Substance: GUAIFENESIN
     Indication: Cough
  8. MUCINEX [Concomitant]
     Active Substance: GUAIFENESIN
     Indication: Laryngitis
  9. MUCINEX [Concomitant]
     Active Substance: GUAIFENESIN
     Indication: Headache
  10. FLONASE [Concomitant]
     Active Substance: FLUTICASONE PROPIONATE
     Indication: Nasal congestion
     Dosage: UNK, UNKNOWN
     Route: 065
  11. FLONASE [Concomitant]
     Active Substance: FLUTICASONE PROPIONATE
     Indication: Cough
  12. FLONASE [Concomitant]
     Active Substance: FLUTICASONE PROPIONATE
     Indication: Laryngitis
  13. FLONASE [Concomitant]
     Active Substance: FLUTICASONE PROPIONATE
     Indication: Headache

REACTIONS (1)
  - Laryngitis [Not Recovered/Not Resolved]
